FAERS Safety Report 8025302-1 (Version None)
Quarter: 2012Q1

REPORT INFORMATION
  Report Type: 
  Country: None (occurrence: None)
  Receive Date: 20120105
  Receipt Date: 20100115
  Transmission Date: 20120608
  Serious: Yes (Other)
  Sender: FDA-Public Use
  Company Number: TH-ROCHE-1026025

PATIENT
  Sex: Female

DRUGS (7)
  1. IGF (INVESTIGATIONAL-INSULIN GROWTH FACTOR RECEPTOR) [Concomitant]
  2. BRONCHODILATORS INHALER [Concomitant]
  3. UNKNOWN MEDICATION [Concomitant]
     Dosage: UNKNOWN MEDICINE IN BLUE FOIL
  4. ORANGE [Concomitant]
  5. FLUTICASONE PROPIONATE/SALMETEROL [Concomitant]
  6. VENTOLIN [Concomitant]
  7. XOLAIR [Suspect]
     Indication: ASTHMA
     Route: 058

REACTIONS (3)
  - HEADACHE [None]
  - ASTHMA [None]
  - PAIN [None]
